FAERS Safety Report 14677100 (Version 1)
Quarter: 2018Q1

REPORT INFORMATION
  Report Type: Spontaneous
  Country: US (occurrence: US)
  Receive Date: 20180323
  Receipt Date: 20180323
  Transmission Date: 20180509
  Serious: No
  Sender: FDA-Public Use
  Company Number: None

PATIENT
  Age: 15 Year
  Sex: Female
  Weight: 97.8 kg

DRUGS (6)
  1. METHOTREXATE. [Suspect]
     Active Substance: METHOTREXATE
     Dates: end: 20180206
  2. VINCRISTINE SULFATE. [Suspect]
     Active Substance: VINCRISTINE SULFATE
     Dates: end: 20180129
  3. CYTARABINE. [Suspect]
     Active Substance: CYTARABINE
     Dates: end: 20180108
  4. DAUNORUBICIN [Suspect]
     Active Substance: DAUNORUBICIN
     Dates: end: 20180129
  5. ONCASPAR [Suspect]
     Active Substance: PEGASPARGASE
     Dates: end: 20180111
  6. PREDNISONE. [Suspect]
     Active Substance: PREDNISONE
     Dates: end: 20180204

REACTIONS (3)
  - Hyperlipidaemia [None]
  - Blood triglycerides increased [None]
  - Blood cholesterol increased [None]

NARRATIVE: CASE EVENT DATE: 20180207
